FAERS Safety Report 20882191 (Version 1)
Quarter: 2022Q2

REPORT INFORMATION
  Report Type: Spontaneous
  Country: CA (occurrence: CA)
  Receive Date: 20220527
  Receipt Date: 20220527
  Transmission Date: 20220721
  Serious: Yes (Other)
  Sender: FDA-Public Use
  Company Number: CA-BAUSCH-BL-2022-012968

PATIENT
  Age: 45 Year
  Sex: Male
  Weight: 98 kg

DRUGS (1)
  1. WELLBUTRIN XL [Suspect]
     Active Substance: BUPROPION HYDROCHLORIDE
     Indication: Depression
     Dosage: TABLET (EXTENDED- RELEASE)
     Route: 048

REACTIONS (5)
  - Abdominal pain upper [Unknown]
  - Eye swelling [Unknown]
  - Lip swelling [Unknown]
  - Pain [Unknown]
  - Pruritus [Unknown]
